FAERS Safety Report 5766318-5 (Version None)
Quarter: 2008Q2

REPORT INFORMATION
  Report Type: 
  Country: None (occurrence: None)
  Receive Date: 20080605
  Receipt Date: 20080526
  Transmission Date: 20081010
  Serious: Yes (Death, Hospitalization)
  Sender: FDA-Public Use
  Company Number: 2008US000483

PATIENT
  Age: 58 Year
  Sex: Male

DRUGS (10)
  1. AMBISOME [Suspect]
     Indication: MYELOFIBROSIS
     Dosage: 3 MG/KG, 3XWEEKLY, IV NOS
     Route: 042
     Dates: start: 20071217, end: 20080109
  2. CYCLOSPORINE [Suspect]
     Indication: GRAFT VERSUS HOST DISEASE
     Dates: start: 20071210, end: 20080201
  3. ATENOLOL [Concomitant]
  4. ACYCLOVIR [Concomitant]
  5. BACTRIM DS [Concomitant]
  6. OMEPRAZOLE [Concomitant]
  7. ASPIRIN [Concomitant]
  8. FOLIC ACID [Concomitant]
  9. LORAZEPAM [Concomitant]
  10. LOPERAMIDE [Concomitant]

REACTIONS (8)
  - ABDOMINAL PAIN UPPER [None]
  - BLOOD CREATININE INCREASED [None]
  - DIARRHOEA [None]
  - NO THERAPEUTIC RESPONSE [None]
  - PANCREATITIS [None]
  - PLATELET COUNT DECREASED [None]
  - RESPIRATORY FAILURE [None]
  - THROMBOCYTOPENIC PURPURA [None]
